FAERS Safety Report 7793025-X (Version None)
Quarter: 2011Q4

REPORT INFORMATION
  Report Type: 
  Country: None (occurrence: None)
  Receive Date: 20111003
  Receipt Date: 20110928
  Transmission Date: 20120403
  Serious: Yes (Other)
  Sender: FDA-Public Use
  Company Number: JP-MYLANLABS-2011S1020084

PATIENT
  Sex: Female

DRUGS (2)
  1. AMNESTEEM [Suspect]
     Dates: start: 20101027
  2. AMNESTEEM [Suspect]

REACTIONS (1)
  - MATERNAL EXPOSURE DURING PREGNANCY [None]
